FAERS Safety Report 15864868 (Version 1)
Quarter: 2019Q1

REPORT INFORMATION
  Report Type: Spontaneous
  Country: US (occurrence: US)
  Receive Date: 20190124
  Receipt Date: 20190124
  Transmission Date: 20190417
  Serious: Yes (Other)
  Sender: FDA-Public Use
  Company Number: US-MYLANLABS-2019M1004170

PATIENT
  Age: 75 Year
  Sex: Female

DRUGS (4)
  1. MYCOPHENOLATE MOFETIL. [Concomitant]
     Active Substance: MYCOPHENOLATE MOFETIL
     Indication: OCULAR PEMPHIGOID
     Dosage: 1000 MILLIGRAM
     Route: 065
  2. PREDNISONE. [Suspect]
     Active Substance: PREDNISONE
     Indication: OCULAR PEMPHIGOID
     Dosage: 60 MILLIGRAM, QD
     Route: 048
  3. METHOTREXATE. [Suspect]
     Active Substance: METHOTREXATE
     Indication: OCULAR PEMPHIGOID
     Dosage: 15 MILLIGRAM, QW
     Route: 065
  4. METHOTREXATE. [Suspect]
     Active Substance: METHOTREXATE
     Dosage: 30 MILLIGRAM, QW
     Route: 065

REACTIONS (15)
  - Arthralgia [Unknown]
  - Alopecia [Unknown]
  - Cushingoid [Unknown]
  - Fatigue [Unknown]
  - Decreased appetite [Unknown]
  - Rash [Unknown]
  - Ecchymosis [Unknown]
  - Muscular weakness [Unknown]
  - Nausea [Unknown]
  - Urinary tract infection [Unknown]
  - Pneumonia [Unknown]
  - Swelling [Unknown]
  - Abdominal pain [Unknown]
  - Anaemia [Unknown]
  - Nervousness [Unknown]
